FAERS Safety Report 5999953-X (Version None)
Quarter: 2008Q4

REPORT INFORMATION
  Report Type: 
  Country: None (occurrence: None)
  Receive Date: 20081215
  Receipt Date: 20081211
  Transmission Date: 20090506
  Serious: Yes (Life-Threatening)
  Sender: FDA-Public Use
  Company Number: PHBS2008AU06648

PATIENT
  Age: 63 Year
  Sex: Female

DRUGS (2)
  1. METOPROLOL [Suspect]
     Indication: PROPHYLAXIS
     Dosage: 50 UNK, UNK
  2. METOPROLOL [Suspect]
     Dosage: 75 UNK, UNK

REACTIONS (1)
  - MYOCARDIAL INFARCTION [None]
